FAERS Safety Report 8494340 (Version 4)
Quarter: 2012Q4

REPORT INFORMATION
  Report Type: Report from Study
  Country: DK (occurrence: JP)
  Receive Date: 20120404
  Receipt Date: 20121227
  Transmission Date: 20130627
  Serious: Yes (Other)
  Sender: FDA-Public Use
  Company Number: JP-FRI-1000029490

PATIENT
  Age: 52 Year
  Sex: Male
  Weight: 83 kg

DRUGS (3)
  1. LEXAPRO [Suspect]
     Indication: DEPRESSION
     Dosage: 10mg
     Route: 048
     Dates: start: 20120127, end: 20120323
  2. LEXAPRO [Suspect]
     Dosage: 10mg
     Route: 048
     Dates: start: 20120420, end: 20120507
  3. MOSAPRIDE CITRATE HYDRATE [Concomitant]
     Indication: NAUSEA
     Route: 048
     Dates: start: 20120223, end: 20120324

REACTIONS (2)
  - Electrocardiogram QT prolonged [Recovering/Resolving]
  - Nausea [Recovered/Resolved]
